FAERS Safety Report 8778602 (Version 1)
Quarter: 2012Q4

REPORT INFORMATION
  Report Type: 
  Country: US (occurrence: US)
  Receive Date: 20120912
  Receipt Date: 20120912
  Transmission Date: 20130627
  Serious: Yes (Other)
  Sender: FDA-Public Use
  Company Number: US-BAYER-2012-091711

PATIENT
  Age: 14 Year
  Sex: Female

DRUGS (7)
  1. NEXAVAR [Suspect]
     Indication: ACUTE MYELOID LEUKAEMIA RECURRENT
     Dosage: 150 mg/m2, BID
     Route: 048
  2. NEXAVAR [Suspect]
     Indication: ACUTE MYELOID LEUKAEMIA RECURRENT
     Dosage: 150 mg/m2, BID
     Route: 048
  3. NEXAVAR [Suspect]
     Indication: ACUTE MYELOID LEUKAEMIA RECURRENT
     Dosage: 150 mg/m2, QD
     Route: 048
  4. ETOPOSIDE [Suspect]
     Indication: ACUTE MYELOID LEUKAEMIA RECURRENT
     Dosage: UNK
  5. ETOPOSIDE [Suspect]
     Indication: ACUTE MYELOID LEUKAEMIA RECURRENT
     Dosage: UNK
  6. CYTARABINE [Suspect]
     Indication: ACUTE MYELOID LEUKAEMIA RECURRENT
     Dosage: UNK
  7. CYTARABINE [Suspect]
     Indication: ACUTE MYELOID LEUKAEMIA RECURRENT
     Dosage: UNK

REACTIONS (6)
  - Fasciitis [None]
  - Cytomegalovirus infection [None]
  - Cardiomyopathy [None]
  - Cardiac tamponade [None]
  - Bone marrow failure [Recovering/Resolving]
  - Infection [None]
